FAERS Safety Report 9265950 (Version 2)
Quarter: 2013Q3

REPORT INFORMATION
  Report Type: Spontaneous
  Country: US (occurrence: US)
  Receive Date: 20130501
  Receipt Date: 20130719
  Transmission Date: 20140515
  Serious: Yes (Hospitalization)
  Sender: FDA-Public Use
  Company Number: US-GILEAD-2013-0074381

PATIENT
  Age: 71 Year
  Sex: Female

DRUGS (6)
  1. LETAIRIS [Suspect]
     Indication: PULMONARY HYPERTENSION
     Dosage: 5 MG, QD
     Route: 048
     Dates: start: 20130308, end: 20130406
  2. PROAIR                             /00139502/ [Concomitant]
  3. SILDENAFIL [Concomitant]
  4. HYDRALAZINE [Concomitant]
  5. METOPROLOL [Concomitant]
  6. MONTELUKAST [Concomitant]

REACTIONS (3)
  - Pulmonary oedema [Recovered/Resolved]
  - Cardiac failure congestive [Recovered/Resolved]
  - Fluid retention [Recovered/Resolved]
